FAERS Safety Report 9473745 (Version 2)
Quarter: 2013Q3

REPORT INFORMATION
  Report Type: Spontaneous
  Country: US (occurrence: US)
  Receive Date: 20130823
  Receipt Date: 20130823
  Transmission Date: 20140515
  Serious: No
  Sender: FDA-Public Use
  Company Number: US-BRISTOL-MYERS SQUIBB COMPANY-16946956

PATIENT
  Age: 41 Year
  Sex: Male
  Weight: 113.38 kg

DRUGS (3)
  1. SPRYCEL [Suspect]
     Indication: CHRONIC MYELOID LEUKAEMIA
  2. MAALOX [Concomitant]
  3. XANAX [Concomitant]

REACTIONS (4)
  - Nasopharyngitis [Unknown]
  - Increased upper airway secretion [Unknown]
  - Chest pain [Not Recovered/Not Resolved]
  - Weight increased [Not Recovered/Not Resolved]
